FAERS Safety Report 9038818 (Version 1)
Quarter: 2013Q1

REPORT INFORMATION
  Report Type: Spontaneous
  Country: US (occurrence: None)
  Receive Date: 20130123
  Receipt Date: 20130123
  Transmission Date: 20140127
  Serious: Yes (Hospitalization)
  Sender: FDA-Public Use
  Company Number: None

PATIENT
  Age: 60 None
  Sex: Female
  Weight: 107.96 kg

DRUGS (1)
  1. FLUTICASONE PROPIONATE [Suspect]
     Dosage: EACH NOSTRIL
     Route: 045
     Dates: start: 20121116, end: 20121209

REACTIONS (1)
  - Epistaxis [None]
